FAERS Safety Report 17841760 (Version 1)
Quarter: 2020Q2

REPORT INFORMATION
  Report Type: Spontaneous
  Country: US (occurrence: US)
  Receive Date: 20200529
  Receipt Date: 20200529
  Transmission Date: 20200714
  Serious: No
  Sender: FDA-Public Use
  Company Number: US-JNJFOC-20200528851

PATIENT
  Age: 56 Year
  Sex: Male
  Weight: 136.2 kg

DRUGS (2)
  1. XARELTO [Suspect]
     Active Substance: RIVAROXABAN
     Indication: THROMBOSIS
     Route: 048
     Dates: start: 202005
  2. IBUPROFEN. [Concomitant]
     Active Substance: IBUPROFEN
     Indication: GOUT
     Route: 065

REACTIONS (1)
  - Gout [Unknown]

NARRATIVE: CASE EVENT DATE: 202005
